FAERS Safety Report 5010682-1 (Version None)
Quarter: 2006Q2

REPORT INFORMATION
  Report Type: 
  Country: None (occurrence: None)
  Receive Date: 20060523
  Receipt Date: 20060507
  Transmission Date: 20061013
  Serious: Yes (Other)
  Sender: FDA-Public Use
  Company Number: 2006061873

PATIENT
  Age: 59 Year
  Sex: Female
  Weight: 58.9676 kg

DRUGS (5)
  1. LYRICA [Suspect]
     Indication: NEURALGIA
     Dosage: 150 MG (75 MG, 2 IN 1 D), ORAL
     Route: 048
     Dates: start: 20060417
  2. CELEBREX [Concomitant]
  3. BEXTRA [Concomitant]
  4. EFFEXOR [Concomitant]
  5. COMBIPATCH [Concomitant]

REACTIONS (5)
  - CONDITION AGGRAVATED [None]
  - HEADACHE [None]
  - PAIN IN EXTREMITY [None]
  - SOMNOLENCE [None]
  - WRONG TECHNIQUE IN DRUG USAGE PROCESS [None]
